FAERS Safety Report 25450488 (Version 1)
Quarter: 2025Q2

REPORT INFORMATION
  Report Type: Spontaneous
  Country: IN (occurrence: IN)
  Receive Date: 20250618
  Receipt Date: 20250618
  Transmission Date: 20250716
  Serious: Yes (Death, Other)
  Sender: AZURITY PHARMACEUTICALS
  Company Number: IN-AZURITY PHARMACEUTICALS, INC.-AZR202506-001595

PATIENT
  Age: 4 Year
  Sex: Female

DRUGS (2)
  1. METHOTREXATE [Suspect]
     Active Substance: METHOTREXATE
     Indication: Still^s disease
     Route: 065
  2. IBUPROFEN [Concomitant]
     Active Substance: IBUPROFEN
     Indication: Still^s disease
     Route: 065

REACTIONS (1)
  - Haemophagocytic lymphohistiocytosis [Fatal]
